FAERS Safety Report 4723952-9 (Version None)
Quarter: 2005Q3

REPORT INFORMATION
  Report Type: 
  Country: None (occurrence: None)
  Receive Date: 20050721
  Receipt Date: 20050713
  Transmission Date: 20060218
  Serious: Yes (Other)
  Sender: FDA-Public Use
  Company Number: 2005096479

PATIENT
  Age: 28 Year
  Sex: Male

DRUGS (2)
  1. RELPAX [Suspect]
     Indication: HEADACHE
     Dosage: 40 MG
  2. ACETAMINOPHEN [Suspect]
     Dosage: 1000 MG (1000 MG 1 IN 1 D)

REACTIONS (10)
  - CONVULSION [None]
  - DIZZINESS [None]
  - DROOLING [None]
  - DRUG INTERACTION [None]
  - EXTRAPYRAMIDAL DISORDER [None]
  - INTENTIONAL MISUSE [None]
  - LOSS OF CONSCIOUSNESS [None]
  - NERVOUS SYSTEM DISORDER [None]
  - SELF-MEDICATION [None]
  - VERTIGO [None]
